FAERS Safety Report 8422761-7 (Version None)
Quarter: 2012Q2

REPORT INFORMATION
  Report Type: 
  Country: None (occurrence: None)
  Receive Date: 20120608
  Receipt Date: 20120605
  Transmission Date: 20120825
  Serious: Yes (Hospitalization, Disabling)
  Sender: FDA-Public Use
  Company Number: US-MERCK-1112USA00800

PATIENT
  Age: 62 Year
  Sex: Female
  Weight: 68 kg

DRUGS (16)
  1. CALCIUM (UNSPECIFIED) [Concomitant]
     Route: 065
  2. FOSAMAX [Suspect]
     Route: 048
     Dates: start: 20021101, end: 20030501
  3. VITAMIN D (UNSPECIFIED) [Concomitant]
     Route: 065
  4. FOSAMAX PLUS D [Suspect]
     Indication: OSTEOPENIA
     Route: 048
     Dates: start: 20070501, end: 20100101
  5. FOSAMAX PLUS D [Suspect]
     Indication: OSTEOPOROSIS
     Route: 048
     Dates: start: 20070501, end: 20100101
  6. ALENDRONATE SODIUM [Suspect]
     Route: 065
     Dates: start: 20100701, end: 20100901
  7. FOSAMAX [Suspect]
     Indication: OSTEOPENIA
     Route: 048
     Dates: start: 19980101, end: 20020801
  8. FOSAMAX [Suspect]
     Route: 048
     Dates: start: 20021101, end: 20030501
  9. MAGNESIUM (UNSPECIFIED) [Concomitant]
     Route: 065
  10. VITAMINS (UNSPECIFIED) [Concomitant]
     Route: 065
  11. ALENDRONATE SODIUM [Suspect]
     Indication: OSTEOPENIA
     Route: 065
     Dates: start: 20100401
  12. ALENDRONATE SODIUM [Suspect]
     Route: 065
     Dates: start: 20100701, end: 20100901
  13. ALENDRONATE SODIUM [Suspect]
     Indication: OSTEOPOROSIS
     Route: 065
     Dates: start: 20100401
  14. FOSAMAX [Suspect]
     Route: 048
     Dates: start: 20030801, end: 20061001
  15. FOSAMAX [Suspect]
     Route: 048
     Dates: start: 20030801, end: 20061001
  16. FOSAMAX [Suspect]
     Indication: OSTEOPOROSIS
     Route: 048
     Dates: start: 19980101, end: 20020801

REACTIONS (16)
  - NERVE INJURY [None]
  - BONE LOSS [None]
  - HYPERLIPIDAEMIA [None]
  - MITRAL VALVE PROLAPSE [None]
  - FEMUR FRACTURE [None]
  - SPINAL COMPRESSION FRACTURE [None]
  - OSTEOARTHRITIS [None]
  - OSTEOPOROSIS [None]
  - LOBAR PNEUMONIA [None]
  - BRONCHITIS [None]
  - CATARACT [None]
  - RHINITIS ALLERGIC [None]
  - LIGAMENT INJURY [None]
  - IMPAIRED HEALING [None]
  - SYNOVIAL CYST [None]
  - PERIODONTAL DISEASE [None]
